FAERS Safety Report 9530708 (Version 1)
Quarter: 2013Q3

REPORT INFORMATION
  Report Type: Spontaneous
  Country: US (occurrence: None)
  Receive Date: 20130916
  Receipt Date: 20130916
  Transmission Date: 20140515
  Serious: Yes (Other)
  Sender: FDA-Public Use
  Company Number: None

PATIENT
  Age: 62 Year
  Sex: Male
  Weight: 50 kg

DRUGS (1)
  1. LISINOPRIL [Suspect]
     Dosage: EVERY 6 MONTHS, INJECTION
     Dates: start: 20110426

REACTIONS (10)
  - Spinal pain [None]
  - Blood urine present [None]
  - Dysphonia [None]
  - Hypotension [None]
  - Dizziness [None]
  - Dysuria [None]
  - Fatigue [None]
  - Cough [None]
  - Asthenia [None]
  - Libido decreased [None]
